FAERS Safety Report 7020228-4 (Version None)
Quarter: 2010Q3

REPORT INFORMATION
  Report Type: 
  Country: None (occurrence: None)
  Receive Date: 20100927
  Receipt Date: 20100625
  Transmission Date: 20110219
  Serious: Yes (Death)
  Sender: FDA-Public Use
  Company Number: CL-160-2010

PATIENT
  Age: 68 Year
  Sex: Female

DRUGS (7)
  1. CIPROFLOXACIN IN DEXTROSE [Suspect]
     Indication: PNEUMONIA
     Dosage: INTRAVENOUS
     Route: 042
     Dates: start: 20100519
  2. INSULIN [Concomitant]
  3. FENTANYL [Concomitant]
  4. PROPOFOL [Concomitant]
  5. SYNTHROID [Concomitant]
  6. ESTROGEN [Concomitant]
  7. HEART MEDICINE [Concomitant]

REACTIONS (2)
  - CARDIOPULMONARY FAILURE [None]
  - SEPSIS [None]
